FAERS Safety Report 9418254 (Version 1)
Quarter: 2013Q3

REPORT INFORMATION
  Report Type: Spontaneous
  Country: US (occurrence: US)
  Receive Date: 20130724
  Receipt Date: 20130724
  Transmission Date: 20140515
  Serious: No
  Sender: FDA-Public Use
  Company Number: US-SUCAMPO PHARMA AMERICAS, INC-SPI201300534

PATIENT
  Age: 58 Year
  Sex: Female
  Weight: 101.59 kg

DRUGS (8)
  1. AMITIZA [Suspect]
     Indication: CONSTIPATION
     Dosage: 24 MCG, QD
     Route: 048
     Dates: start: 20130717
  2. K-CHLOR [Concomitant]
     Indication: MINERAL SUPPLEMENTATION
  3. XANAX [Concomitant]
  4. ENALAPRIL [Concomitant]
  5. BABY ASPIRIN [Concomitant]
     Dosage: 81 MG, UNK
     Route: 048
  6. UNKNOWN BETA BLOCKER [Concomitant]
  7. UNKNOWN FLUID PILL [Concomitant]
  8. SYNTHROID [Concomitant]
     Indication: HYPOTHYROIDISM

REACTIONS (3)
  - Cough [None]
  - Chest discomfort [None]
  - Dyspnoea [None]
